FAERS Safety Report 7155967-8 (Version None)
Quarter: 2010Q4

REPORT INFORMATION
  Report Type: 
  Country: None (occurrence: None)
  Receive Date: 20101214
  Receipt Date: 20101207
  Transmission Date: 20110411
  Serious: Yes (Death, Hospitalization, Other)
  Sender: FDA-Public Use
  Company Number: PHBS2007US21853

PATIENT
  Sex: Female
  Weight: 64.399 kg

DRUGS (8)
  1. EXJADE [Suspect]
     Indication: IRON OVERLOAD
     Dosage: 250 MG, UNK
  2. EXJADE [Suspect]
     Dosage: 1000 MG, UNK
     Route: 048
     Dates: start: 20060501, end: 20060501
  3. EXJADE [Suspect]
     Dosage: 750 MG DAILY
     Route: 048
     Dates: start: 20070724, end: 20070828
  4. EXJADE [Suspect]
     Dosage: UNK
  5. ALBUTEROL [Concomitant]
     Dosage: UNK
  6. FOLIC ACID [Concomitant]
     Dosage: 1 MG, UNK
     Route: 048
  7. LISINOPRIL [Concomitant]
     Dosage: 20 MG, UNK
     Route: 048
  8. IMODIUM [Concomitant]
     Dosage: UNK

REACTIONS (11)
  - ABDOMINAL PAIN [None]
  - ACUTE RESPIRATORY DISTRESS SYNDROME [None]
  - CHILLS [None]
  - DEATH [None]
  - DIARRHOEA [None]
  - DYSPNOEA [None]
  - HAEMOGLOBIN DECREASED [None]
  - MEDIASTINAL MASS [None]
  - PYREXIA [None]
  - SEPSIS [None]
  - THYMIC CANCER METASTATIC [None]
